FAERS Safety Report 5334539-1 (Version None)
Quarter: 2007Q2

REPORT INFORMATION
  Report Type: 
  Country: None (occurrence: None)
  Receive Date: 20070522
  Receipt Date: 20070514
  Transmission Date: 20071010
  Serious: Yes (Hospitalization)
  Sender: FDA-Public Use
  Company Number: 236633K06USA

PATIENT
  Age: 62 Year
  Sex: Male

DRUGS (6)
  1. REBIF [Suspect]
     Indication: MULTIPLE SCLEROSIS
     Dosage: 44 MCG, 3 IN 1 WEEKS, SUBCUTANEOUS
     Route: 058
     Dates: start: 20030630
  2. LISINOPRIL (LISINOPRIL  /00894001/) [Concomitant]
  3. METFORMIN [Concomitant]
  4. GLYBURIDE [Concomitant]
  5. ZOCOR [Concomitant]
  6. ZOLOFT [Concomitant]

REACTIONS (5)
  - ABDOMINAL PAIN [None]
  - CATHETER RELATED COMPLICATION [None]
  - KIDNEY INFECTION [None]
  - NEPHROLITHIASIS [None]
  - SEPSIS [None]
